FAERS Safety Report 6389558-3 (Version None)
Quarter: 2009Q4

REPORT INFORMATION
  Report Type: 
  Country: None (occurrence: None)
  Receive Date: 20091003
  Receipt Date: 20090917
  Transmission Date: 20100525
  Serious: Yes (Hospitalization)
  Sender: FDA-Public Use
  Company Number: SPV1-2009-01904

PATIENT
  Age: 12 Year
  Sex: Male

DRUGS (1)
  1. ELAPRASE [Suspect]
     Indication: MUCOPOLYSACCHARIDOSIS II
     Dosage: IV DRIP
     Route: 041
     Dates: start: 20060914

REACTIONS (2)
  - CONDITION AGGRAVATED [None]
  - MUCOPOLYSACCHARIDOSIS II [None]
